FAERS Safety Report 19122633 (Version 1)
Quarter: 2021Q2

REPORT INFORMATION
  Report Type: Spontaneous
  Country: US (occurrence: US)
  Receive Date: 20210412
  Receipt Date: 20210412
  Transmission Date: 20210717
  Serious: Yes (Other)
  Sender: FDA-Public Use
  Company Number: US-KINDEVA DRUG DELIVERY L.P.-2109196

PATIENT
  Age: 64 Year
  Sex: Male

DRUGS (15)
  1. ALBUTEROL SULFATE. [Suspect]
     Active Substance: ALBUTEROL SULFATE
     Route: 055
  2. ALLOPURINOL. [Suspect]
     Active Substance: ALLOPURINOL
     Route: 048
  3. METFORMIN [Suspect]
     Active Substance: METFORMIN HYDROCHLORIDE
     Route: 048
  4. TAMSULOSIN HYDROCHLORIDE. [Suspect]
     Active Substance: TAMSULOSIN HYDROCHLORIDE
     Route: 048
  5. VOTRIENT [Suspect]
     Active Substance: PAZOPANIB HYDROCHLORIDE
     Route: 048
  6. FISH OIL CAPSULES [Suspect]
     Active Substance: FISH OIL
     Route: 048
  7. SYMBICORT [Suspect]
     Active Substance: BUDESONIDE\FORMOTEROL FUMARATE DIHYDRATE
     Route: 055
  8. TUMS [Suspect]
     Active Substance: CALCIUM CARBONATE
  9. AMLODIPINE [Suspect]
     Active Substance: AMLODIPINE BESYLATE
     Route: 048
  10. ASPIR?LOW TBE [Suspect]
     Active Substance: ASPIRIN
     Route: 048
  11. CALCIUM CARB TAB [Suspect]
     Active Substance: CALCIUM CARBONATE
     Route: 048
  12. HYDROCODONE TABLET [Suspect]
     Active Substance: HYDROCODONE
     Route: 048
  13. TYLENOL [Suspect]
     Active Substance: ACETAMINOPHEN
     Route: 048
  14. PROVENTIL HFA [Suspect]
     Active Substance: ALBUTEROL SULFATE
  15. SODIUM BICARBONATE. [Suspect]
     Active Substance: SODIUM BICARBONATE

REACTIONS (3)
  - Cough [Not Recovered/Not Resolved]
  - Dyspnoea [Not Recovered/Not Resolved]
  - Panic attack [Not Recovered/Not Resolved]

NARRATIVE: CASE EVENT DATE: 20210318
